APPROVED DRUG PRODUCT: PROPOFOL
Active Ingredient: PROPOFOL
Strength: 10MG/ML
Dosage Form/Route: INJECTABLE;INJECTION
Application: A217525 | Product #001 | TE Code: AB
Applicant: AMNEAL EU LTD
Approved: Aug 15, 2024 | RLD: No | RS: No | Type: RX